FAERS Safety Report 5999697-4 (Version None)
Quarter: 2008Q4

REPORT INFORMATION
  Report Type: 
  Country: None (occurrence: None)
  Receive Date: 20081215
  Receipt Date: 20081208
  Transmission Date: 20090506
  Serious: Yes (Death, Other)
  Sender: FDA-Public Use
  Company Number: JP-NOVOPROD-282095

PATIENT
  Age: 17 Year
  Sex: Female
  Weight: 44 kg

DRUGS (1)
  1. NORDITROPIN NORDIFLEX [Suspect]
     Indication: GROWTH HORMONE DEFICIENCY
     Dosage: 1 MG, QD
     Route: 058
     Dates: start: 20041201, end: 20080422

REACTIONS (3)
  - DIZZINESS [None]
  - DROWNING [None]
  - LOSS OF CONSCIOUSNESS [None]
